FAERS Safety Report 5030464-4 (Version None)
Quarter: 2006Q2

REPORT INFORMATION
  Report Type: 
  Country: None (occurrence: None)
  Receive Date: 20060620
  Receipt Date: 20060609
  Transmission Date: 20061013
  Serious: Yes (Hospitalization)
  Sender: FDA-Public Use
  Company Number: US-BOEHRINGER INGELHEIM PHARMACEUTICALS, INC.-2006-DE-02996GD

PATIENT

DRUGS (3)
  1. ASPIRIN [Suspect]
  2. ACETYLSALICYLIC ACID + DIPYRIDAMOLE [Suspect]
  3. CLOPIDOGREL [Suspect]

REACTIONS (2)
  - DRUG INEFFECTIVE [None]
  - ISCHAEMIC STROKE [None]
